FAERS Safety Report 15549015 (Version 2)
Quarter: 2018Q4

REPORT INFORMATION
  Report Type: Spontaneous
  Country: JP (occurrence: JP)
  Receive Date: 20181025
  Receipt Date: 20181129
  Transmission Date: 20190205
  Serious: Yes (Death)
  Sender: FDA-Public Use
  Company Number: JP-TEVA-2018-JP-968008

PATIENT
  Age: 70 Year
  Sex: Male
  Weight: 62.5 kg

DRUGS (11)
  1. BELSOMRA [Concomitant]
     Active Substance: SUVOREXANT
     Dates: start: 20180925, end: 20181014
  2. TOVIAZ [Concomitant]
     Active Substance: FESOTERODINE FUMARATE
     Dates: start: 20180928, end: 20181014
  3. SHINLUCK [Concomitant]
     Active Substance: SODIUM PICOSULFATE
     Dosage: SOLUTION (EXCEPT SYRUP)
     Dates: start: 20180918, end: 20181014
  4. AMITIZA [Concomitant]
     Active Substance: LUBIPROSTONE
     Dates: start: 20171222, end: 20181014
  5. STALEVO [Concomitant]
     Active Substance: CARBIDOPA\ENTACAPONE\LEVODOPA
     Dates: start: 20180612, end: 20181014
  6. MENESIT [Concomitant]
     Active Substance: CARBIDOPA\LEVODOPA
     Dates: start: 20141224, end: 20181014
  7. AZILECT [Suspect]
     Active Substance: RASAGILINE MESYLATE
     Indication: PARKINSON^S DISEASE
     Dosage: 1 MILLIGRAM DAILY;
     Route: 048
     Dates: start: 20180929, end: 20181014
  8. PRAMIPEXOLE HYDROCHLORIDE MONOHYDRATE [Concomitant]
     Active Substance: PRAMIPEXOLE
     Dates: start: 20161230, end: 20181014
  9. SENNOSIDE A+B [Concomitant]
     Active Substance: SENNOSIDES A AND B
     Dates: start: 20171222, end: 20181014
  10. BIO-THREE [Concomitant]
     Active Substance: HERBALS
     Dosage: ORODISPERSIBLE TABLET
     Dates: start: 20180607, end: 20181014
  11. LUNESTA [Concomitant]
     Active Substance: ESZOPICLONE
     Dates: start: 20170210, end: 20181014

REACTIONS (2)
  - Off label use [Unknown]
  - Sudden death [Fatal]

NARRATIVE: CASE EVENT DATE: 20180929
